FAERS Safety Report 18431492 (Version 1)
Quarter: 2020Q4

REPORT INFORMATION
  Report Type: Spontaneous
  Country: US (occurrence: US)
  Receive Date: 20201027
  Receipt Date: 20201027
  Transmission Date: 20210114
  Serious: Yes (Other)
  Sender: FDA-Public Use
  Company Number: None

PATIENT
  Sex: Female

DRUGS (7)
  1. BENLYSTA [Suspect]
     Active Substance: BELIMUMAB
     Indication: SYSTEMIC LUPUS ERYTHEMATOSUS
     Route: 058
     Dates: start: 20180221
  2. PANTOPRAZOLE [Suspect]
     Active Substance: PANTOPRAZOLE
  3. PROBIOTIC [Suspect]
     Active Substance: PROBIOTICS NOS
  4. PLAQUENIL [Suspect]
     Active Substance: HYDROXYCHLOROQUINE SULFATE
  5. DOK + PREGABALIN [Concomitant]
  6. ELIQUIS [Suspect]
     Active Substance: APIXABAN
  7. CYCLOBENZAPRINE. [Suspect]
     Active Substance: CYCLOBENZAPRINE

REACTIONS (1)
  - Surgery [None]
